FAERS Safety Report 8981513 (Version 1)
Quarter: 2012Q4

REPORT INFORMATION
  Report Type: Report from Study
  Country: FR (occurrence: FR)
  Receive Date: 20121221
  Receipt Date: 20121221
  Transmission Date: 20130627
  Serious: Yes (Death)
  Sender: FDA-Public Use
  Company Number: FR-SANOFI-AVENTIS-2012SA093455

PATIENT

DRUGS (4)
  1. OXALIPLATIN [Suspect]
     Indication: COLON CANCER
     Dosage: drug was administered on day 1, intravenous
     Route: 042
  2. CAPECITABINE [Suspect]
     Indication: COLON CANCER
     Dosage: first dose in the evening of day 1 and the last dose in the morning of day 15, every 3 weeks
     Route: 048
  3. BEVACIZUMAB [Suspect]
     Indication: COLON CANCER
     Dosage: drug was administered on day 1, 30-min to 90-min infusion
     Route: 042
  4. BEVACIZUMAB [Suspect]
     Indication: COLON CANCER
     Dosage: drug was administered on day 1, intravenous
     Route: 042

REACTIONS (1)
  - Sudden death [Fatal]
